FAERS Safety Report 6218128-2 (Version None)
Quarter: 2009Q2

REPORT INFORMATION
  Report Type: 
  Country: None (occurrence: None)
  Receive Date: 20090608
  Receipt Date: 20090602
  Transmission Date: 20091009
  Serious: Yes (Other)
  Sender: FDA-Public Use
  Company Number: PHHY2009CN21643

PATIENT
  Age: 56 Year
  Sex: Female

DRUGS (3)
  1. VOLTAREN [Suspect]
     Indication: TENSION HEADACHE
     Dosage: 50 MG, TID
     Route: 048
  2. EPERISONE [Concomitant]
     Dosage: 50 MG, TID
  3. YANGXUE QINGNAO [Concomitant]
     Dosage: 4 G, TID

REACTIONS (4)
  - ANGIOEDEMA [None]
  - FACE OEDEMA [None]
  - FLUSHING [None]
  - PYREXIA [None]
